FAERS Safety Report 5479371-3 (Version None)
Quarter: 2007Q4

REPORT INFORMATION
  Report Type: 
  Country: None (occurrence: None)
  Receive Date: 20071008
  Receipt Date: 20070927
  Transmission Date: 20080405
  Serious: Yes (Hospitalization)
  Sender: FDA-Public Use
  Company Number: US-AMGEN-STX245445

PATIENT
  Sex: Male

DRUGS (2)
  1. ENBREL [Suspect]
     Indication: ANKYLOSING SPONDYLITIS
     Route: 058
     Dates: start: 20060301
  2. ENBREL [Suspect]
     Indication: PSORIATIC ARTHROPATHY

REACTIONS (7)
  - EPISTAXIS [None]
  - FACIAL BONES FRACTURE [None]
  - GAIT DISTURBANCE [None]
  - HAEMORRHAGE INTRACRANIAL [None]
  - MUSCULOSKELETAL STIFFNESS [None]
  - NECK PAIN [None]
  - RHEUMATOID ARTHRITIS [None]
